FAERS Safety Report 9711562 (Version 1)
Quarter: 2013Q4

REPORT INFORMATION
  Report Type: Spontaneous
  Country: US (occurrence: US)
  Receive Date: 20131126
  Receipt Date: 20131126
  Transmission Date: 20140711
  Serious: No
  Sender: FDA-Public Use
  Company Number: US-BRISTOL-MYERS SQUIBB COMPANY-19080936

PATIENT
  Age: 52 Year
  Sex: Male
  Weight: 81.63 kg

DRUGS (3)
  1. BYDUREON [Suspect]
     Indication: TYPE 2 DIABETES MELLITUS
     Dosage: THERAPY:3 TO4 MNTHS AGO?PRESCRIPTION:547443
  2. GLIMEPIRIDE [Concomitant]
  3. VITAMIN D [Concomitant]

REACTIONS (5)
  - Injection site bruising [Recovered/Resolved]
  - Injection site nodule [Recovering/Resolving]
  - Blood glucose decreased [Recovered/Resolved]
  - Vitamin D decreased [Unknown]
  - Drug administration error [Unknown]
